FAERS Safety Report 6414065-9 (Version None)
Quarter: 2009Q4

REPORT INFORMATION
  Report Type: 
  Country: None (occurrence: None)
  Receive Date: 20091026
  Receipt Date: 20091019
  Transmission Date: 20100525
  Serious: Yes (Death, Other)
  Sender: FDA-Public Use
  Company Number: US-ELI_LILLY_AND_COMPANY-US200910004625

PATIENT
  Sex: Male

DRUGS (2)
  1. GEMZAR [Suspect]
     Indication: BLADDER CANCER
  2. ALIMTA [Suspect]
     Indication: BLADDER CANCER
     Dosage: UNK, UNK
     Route: 042
     Dates: start: 20091001, end: 20091015

REACTIONS (4)
  - DEATH [None]
  - MALIGNANT NEOPLASM PROGRESSION [None]
  - OFF LABEL USE [None]
  - PANCYTOPENIA [None]
